FAERS Safety Report 5118984-5 (Version None)
Quarter: 2006Q3

REPORT INFORMATION
  Report Type: 
  Country: None (occurrence: None)
  Receive Date: 20060927
  Receipt Date: 20060914
  Transmission Date: 20061208
  Serious: Yes (Life-Threatening, Hospitalization)
  Sender: FDA-Public Use
  Company Number: 2006110955

PATIENT
  Age: 76 Year
  Sex: Male

DRUGS (8)
  1. DETRUSITOL SR (TOLTERODINE) [Suspect]
     Indication: URGE INCONTINENCE
     Dosage: 4 MG, ORAL
     Route: 048
     Dates: start: 20060913, end: 20060913
  2. TICLOPIDINE HCL [Concomitant]
  3. LANSOPRAZOLE [Concomitant]
  4. ARICEPT [Concomitant]
  5. TAMSULOSIN HCL [Concomitant]
  6. CARDENALIN (DOXAZOSIN) [Concomitant]
  7. FERROMIA (FERROUS CITRATE) [Concomitant]
  8. ALL OTHER THERAPEUTIC PRODUCTS [Concomitant]

REACTIONS (3)
  - CHEST DISCOMFORT [None]
  - CHEST PAIN [None]
  - HYPERTENSIVE EMERGENCY [None]
